FAERS Safety Report 9029008 (Version 3)
Quarter: 2013Q1

REPORT INFORMATION
  Report Type: Spontaneous
  Country: CA (occurrence: CA)
  Receive Date: 20130122
  Receipt Date: 20130221
  Transmission Date: 20140127
  Serious: Yes (Hospitalization, Other)
  Sender: FDA-Public Use
  Company Number: PHHY2013CA005661

PATIENT
  Age: 43 Year
  Sex: Male

DRUGS (16)
  1. GILENYA [Suspect]
     Indication: RELAPSING-REMITTING MULTIPLE SCLEROSIS
     Dosage: 0.5 MG, QD
     Route: 048
     Dates: start: 20120326, end: 20130116
  2. DIVALPROEX [Concomitant]
     Dosage: 500 MG, QHS
     Dates: start: 20110606
  3. DOCUSATE SODIUM [Concomitant]
     Dosage: 2 DF, QHS
     Dates: start: 20120712
  4. KETOCONAZOLE [Concomitant]
     Dosage: 1 DF, BIW
     Dates: start: 20110606
  5. PANTOPRAZOLE [Concomitant]
     Dosage: 40 MG, QD
     Dates: start: 20110621
  6. QUETIAPINE [Concomitant]
     Dosage: 1 DF, QD
     Dates: start: 20111130
  7. TERBINAFINE [Concomitant]
     Dosage: 1 DF, QD
     Dates: start: 20121212
  8. VITAMIN C [Concomitant]
     Dosage: 500 MG, QD
     Dates: start: 20110606
  9. ACETAMINOPHEN [Concomitant]
     Dosage: 2 DF, QID
     Dates: start: 20120117
  10. VITAMIN D3 [Concomitant]
     Dosage: 1 DF, QD
     Dates: start: 20120404
  11. TOPIQUE JAUNE [Concomitant]
  12. CLOTRIMAZOLE [Concomitant]
     Dosage: 1 DF, BID
     Dates: start: 20110606
  13. OXAZEPAM [Concomitant]
     Dosage: 0.5 DF, QHS
     Dates: start: 20110921
  14. METRONIDAZOLE [Concomitant]
     Dosage: 1 DF, QID
     Dates: start: 20121202
  15. VIAGRA [Concomitant]
     Indication: ERECTILE DYSFUNCTION
  16. EPIVAL [Concomitant]

REACTIONS (5)
  - Convulsion [Unknown]
  - Postictal state [Unknown]
  - Memory impairment [Unknown]
  - Influenza [Unknown]
  - Pyrexia [Unknown]
